FAERS Safety Report 20383624 (Version 1)
Quarter: 2022Q1

REPORT INFORMATION
  Report Type: Report from Study
  Country: US (occurrence: US)
  Receive Date: 20220127
  Receipt Date: 20220127
  Transmission Date: 20220423
  Serious: No
  Sender: FDA-Public Use
  Company Number: US-NOVARTISTESTPH-NVSC2022US016921

PATIENT
  Sex: Female

DRUGS (2)
  1. PROMACTA [Interacting]
     Active Substance: ELTROMBOPAG OLAMINE
     Indication: Immune thrombocytopenia
     Dosage: 50 MG, QD (STARTED 10 DAYS AGO)
     Route: 048
  2. CALCIUM [Interacting]
     Active Substance: CALCIUM
     Indication: Product used for unknown indication
     Dosage: SUPPLEMENT
     Route: 065

REACTIONS (3)
  - Platelet count decreased [Not Recovered/Not Resolved]
  - Incorrect dose administered [Recovered/Resolved]
  - Drug interaction [Recovered/Resolved]
